FAERS Safety Report 7022424-9 (Version None)
Quarter: 2010Q3

REPORT INFORMATION
  Report Type: 
  Country: None (occurrence: None)
  Receive Date: 20100930
  Receipt Date: 20100922
  Transmission Date: 20110219
  Serious: Yes (Death, Other)
  Sender: FDA-Public Use
  Company Number: JP-ROCHE-726666

PATIENT
  Sex: Female
  Weight: 47 kg

DRUGS (9)
  1. AVASTIN [Suspect]
     Indication: LUNG ADENOCARCINOMA
     Route: 041
     Dates: start: 20100713, end: 20100810
  2. CARBOPLATIN [Suspect]
     Indication: LUNG ADENOCARCINOMA
     Dosage: DOSAGE IS UNCERTAIN.
     Route: 041
     Dates: start: 20100713, end: 20100810
  3. PACLITAXEL [Suspect]
     Indication: LUNG ADENOCARCINOMA
     Dosage: DOSAGE IS UNCERTAIN
     Route: 041
     Dates: start: 20100713, end: 20100810
  4. HYPEN [Concomitant]
     Route: 048
  5. GASTER D [Concomitant]
     Route: 048
  6. MAGMITT [Concomitant]
     Route: 048
  7. GASMOTIN [Concomitant]
     Route: 048
  8. METHYCOBAL [Concomitant]
     Route: 048
  9. ONEALFA [Concomitant]
     Route: 054

REACTIONS (10)
  - ALOPECIA [None]
  - AORTIC DISSECTION [None]
  - ARTHRALGIA [None]
  - BLOOD PRESSURE INCREASED [None]
  - BONE MARROW FAILURE [None]
  - CARDIAC TAMPONADE [None]
  - CONSTIPATION [None]
  - FIBRIN D DIMER INCREASED [None]
  - HYPOAESTHESIA [None]
  - MUSCLE SPASMS [None]
